FAERS Safety Report 16440125 (Version 1)
Quarter: 2019Q2

REPORT INFORMATION
  Report Type: Spontaneous
  Country: US (occurrence: US)
  Receive Date: 20190508
  Receipt Date: 20190508
  Transmission Date: 20190711
  Serious: Yes (Other)
  Sender: FDA-Public Use
  Company Number: None

PATIENT
  Age: 63 Year
  Weight: 99.34 kg

DRUGS (15)
  1. COLACE [Concomitant]
     Active Substance: DOCUSATE SODIUM
  2. VITAMIN B12 [Concomitant]
     Active Substance: CYANOCOBALAMIN
  3. METFORMIN [Concomitant]
     Active Substance: METFORMIN HYDROCHLORIDE
  4. PRAVACHOL [Concomitant]
     Active Substance: PRAVASTATIN SODIUM
  5. POTASSIUM [Concomitant]
     Active Substance: POTASSIUM
  6. HYDROCODONE/TYLENOL MOBIC [Concomitant]
  7. VITAMIN D [Concomitant]
     Active Substance: VITAMIN D NOS
  8. JARDIANCE [Suspect]
     Active Substance: EMPAGLIFLOZIN
     Indication: TYPE 2 DIABETES MELLITUS
     Dosage: ?          QUANTITY:1 DF DOSAGE FORM;?
     Route: 048
     Dates: start: 20181212, end: 20190228
  9. ZETIA [Concomitant]
     Active Substance: EZETIMIBE
  10. GLIMERIDE [Concomitant]
     Active Substance: GLIMEPIRIDE
  11. DIOVAN HCT [Concomitant]
     Active Substance: HYDROCHLOROTHIAZIDE\VALSARTAN
  12. MOBIC [Concomitant]
     Active Substance: MELOXICAM
  13. JARDIANCE [Suspect]
     Active Substance: EMPAGLIFLOZIN
     Indication: GLYCOSYLATED HAEMOGLOBIN INCREASED
     Dosage: ?          QUANTITY:1 DF DOSAGE FORM;?
     Route: 048
     Dates: start: 20181212, end: 20190228
  14. ASPIRIN. [Concomitant]
     Active Substance: ASPIRIN
  15. JARDIANCE [Suspect]
     Active Substance: EMPAGLIFLOZIN
     Indication: PYREXIA
     Dosage: ?          QUANTITY:1 DF DOSAGE FORM;?
     Route: 048
     Dates: start: 20181212, end: 20190228

REACTIONS (13)
  - Pruritus [None]
  - Irritability [None]
  - Genital swelling [None]
  - Genital pain [None]
  - Genital erythema [None]
  - Rash [None]
  - Perineal ulceration [None]
  - Fungal infection [None]
  - Clitoral engorgement [None]
  - Genital ulceration [None]
  - Perineal disorder [None]
  - Skin exfoliation [None]
  - Burning sensation [None]

NARRATIVE: CASE EVENT DATE: 20181220
